FAERS Safety Report 9240882 (Version 1)
Quarter: 2013Q2

REPORT INFORMATION
  Report Type: Report from Study
  Country: US (occurrence: US)
  Receive Date: 20130418
  Receipt Date: 20130418
  Transmission Date: 20140414
  Serious: No
  Sender: FDA-Public Use
  Company Number: US-009507513-1207USA005238

PATIENT
  Age: 63 Year
  Sex: Male
  Weight: 90.7 kg

DRUGS (4)
  1. RIBAVIRIN [Suspect]
     Indication: HEPATITIS C
     Route: 048
  2. PEGINTERFERON ALFA-2A [Suspect]
  3. GS-5885 [Suspect]
     Indication: HEPATITIS C
     Route: 048
  4. INVESTIGATIONAL DRUG (UNSPECIFIED) [Suspect]
     Indication: HEPATITIS C

REACTIONS (1)
  - Accidental overdose [Unknown]
